FAERS Safety Report 13512191 (Version 2)
Quarter: 2017Q2

REPORT INFORMATION
  Report Type: Report from Study
  Country: US (occurrence: US)
  Receive Date: 20170504
  Receipt Date: 20170508
  Transmission Date: 20170830
  Serious: Yes (Death)
  Sender: FDA-Public Use
  Company Number: US-ROCHE-1930321

PATIENT
  Sex: Female

DRUGS (4)
  1. HERCEPTIN [Suspect]
     Active Substance: TRASTUZUMAB
     Route: 042
     Dates: end: 20161126
  2. HERCEPTIN [Suspect]
     Active Substance: TRASTUZUMAB
     Indication: COLON NEOPLASM
     Route: 042
     Dates: start: 20161004
  3. HERCEPTIN [Suspect]
     Active Substance: TRASTUZUMAB
     Indication: BRAIN NEOPLASM
     Route: 042
     Dates: start: 20161104
  4. HERCEPTIN [Suspect]
     Active Substance: TRASTUZUMAB
     Route: 042
     Dates: start: 20161125

REACTIONS (2)
  - Death [Fatal]
  - Off label use [Fatal]
